FAERS Safety Report 6116836-5 (Version None)
Quarter: 2009Q1

REPORT INFORMATION
  Report Type: 
  Country: None (occurrence: None)
  Receive Date: 20090314
  Receipt Date: 20081229
  Transmission Date: 20090719
  Serious: No
  Sender: FDA-Public Use
  Company Number: US-ABBOTT-08P-163-0495204-00

PATIENT
  Sex: Female
  Weight: 52.664 kg

DRUGS (7)
  1. HUMIRA [Suspect]
     Indication: CROHN'S DISEASE
     Dates: start: 20081107, end: 20081229
  2. IMURAN [Concomitant]
     Indication: DRUG USE FOR UNKNOWN INDICATION
  3. PENTASA [Concomitant]
     Indication: DRUG USE FOR UNKNOWN INDICATION
  4. PREVACID [Concomitant]
     Indication: DRUG USE FOR UNKNOWN INDICATION
  5. ACTONEL [Concomitant]
     Indication: DRUG USE FOR UNKNOWN INDICATION
  6. METOPROLOL TARTRATE [Concomitant]
     Indication: DRUG USE FOR UNKNOWN INDICATION
  7. VITAMINS [Concomitant]
     Indication: DRUG USE FOR UNKNOWN INDICATION

REACTIONS (3)
  - ABDOMINAL DISTENSION [None]
  - FLATULENCE [None]
  - OPEN WOUND [None]
